FAERS Safety Report 12795056 (Version 2)
Quarter: 2016Q4

REPORT INFORMATION
  Report Type: Spontaneous
  Country: US (occurrence: US)
  Receive Date: 20160929
  Receipt Date: 20161003
  Transmission Date: 20170207
  Serious: Yes (Hospitalization)
  Sender: FDA-Public Use
  Company Number: US-JNJFOC-20160928357

PATIENT
  Sex: Female

DRUGS (2)
  1. REMICADE [Suspect]
     Active Substance: INFLIXIMAB
     Indication: CROHN^S DISEASE
     Dosage: EVERY 2 WEEKS THEN EVERY FEW MONTHS
     Route: 042
     Dates: start: 201602, end: 201603
  2. IMURAN [Concomitant]
     Active Substance: AZATHIOPRINE
     Route: 065

REACTIONS (3)
  - Blister [Recovered/Resolved]
  - Surgery [Unknown]
  - Adverse event [Unknown]

NARRATIVE: CASE EVENT DATE: 2016
